FAERS Safety Report 5511509-1 (Version None)
Quarter: 2007Q4

REPORT INFORMATION
  Report Type: 
  Country: None (occurrence: None)
  Receive Date: 20071109
  Receipt Date: 20071031
  Transmission Date: 20080405
  Serious: Yes (Other)
  Sender: FDA-Public Use
  Company Number: B0493414A

PATIENT
  Sex: Male

DRUGS (1)
  1. REQUIP [Suspect]
     Indication: PARKINSON'S DISEASE
     Route: 065
     Dates: end: 20070101

REACTIONS (3)
  - AGGRESSION [None]
  - PATHOLOGICAL GAMBLING [None]
  - THEFT [None]
